FAERS Safety Report 15863235 (Version 2)
Quarter: 2020Q1

REPORT INFORMATION
  Report Type: Report from Study
  Country: US (occurrence: US)
  Receive Date: 20190124
  Receipt Date: 20200103
  Transmission Date: 20200409
  Serious: No
  Sender: FDA-Public Use
  Company Number: PHEH2019US003187

PATIENT
  Sex: Female

DRUGS (4)
  1. ILARIS [Suspect]
     Active Substance: CANAKINUMAB
     Dosage: UNK
     Route: 058
     Dates: start: 20191113
  2. ILARIS [Suspect]
     Active Substance: CANAKINUMAB
     Dosage: 150 MG (Q 6 WEEKS X 2 THEN EVERY 8 WEEKS)
     Route: 058
  3. ILARIS [Suspect]
     Active Substance: CANAKINUMAB
     Dosage: UNK
     Route: 058
     Dates: start: 20191219
  4. ILARIS [Suspect]
     Active Substance: CANAKINUMAB
     Indication: STILL^S DISEASE
     Dosage: 150 MG, Q4W
     Route: 058
     Dates: start: 20180531

REACTIONS (1)
  - Inappropriate schedule of product administration [Unknown]
